FAERS Safety Report 16965863 (Version 1)
Quarter: 2019Q4

REPORT INFORMATION
  Report Type: Spontaneous
  Country: US (occurrence: US)
  Receive Date: 20190910
  Receipt Date: 20190910
  Transmission Date: 20200122
  Serious: No
  Sender: FDA-Public Use
  Company Number: None

PATIENT
  Age: 46 Year
  Sex: Female

DRUGS (1)
  1. SIMPONI [Suspect]
     Active Substance: GOLIMUMAB
     Indication: COLITIS ULCERATIVE
     Dosage: ?          OTHER FREQUENCY:OTHER;?
     Route: 057
     Dates: start: 201901

REACTIONS (1)
  - Off label use [None]

NARRATIVE: CASE EVENT DATE: 20190910
